FAERS Safety Report 8395606-1 (Version None)
Quarter: 2012Q2

REPORT INFORMATION
  Report Type: 
  Country: None (occurrence: None)
  Receive Date: 20120530
  Receipt Date: 20111107
  Transmission Date: 20120825
  Serious: No
  Sender: FDA-Public Use
  Company Number: US-GLAXOSMITHKLINE-A0952187A

PATIENT
  Age: 45 Year
  Sex: Female

DRUGS (3)
  1. OXYGEN [Concomitant]
  2. VENTOLIN [Suspect]
     Indication: ASTHMA
     Dosage: 2PUFF FOUR TIMES PER DAY
     Route: 055
     Dates: start: 20060101
  3. ALBUTEROL [Concomitant]

REACTIONS (5)
  - DYSPNOEA [None]
  - NIGHTMARE [None]
  - OVERDOSE [None]
  - CHEST PAIN [None]
  - DRUG ADMINISTRATION ERROR [None]
